FAERS Safety Report 12594875 (Version 1)
Quarter: 2016Q3

REPORT INFORMATION
  Report Type: Spontaneous
  Country: BR (occurrence: BR)
  Receive Date: 20160726
  Receipt Date: 20160726
  Transmission Date: 20161109
  Serious: Yes (Other)
  Sender: FDA-Public Use
  Company Number: BR-PFIZER INC-2016352228

PATIENT
  Age: 60 Year
  Sex: Female

DRUGS (14)
  1. EXPEC [Concomitant]
     Indication: CATARRH
     Dosage: UNK, 3X/DAY
     Route: 048
  2. DULOXETINE HYDROCHLORIDE. [Concomitant]
     Active Substance: DULOXETINE HYDROCHLORIDE
     Indication: FIBROMYALGIA
  3. AMATO [Concomitant]
     Active Substance: TOPIRAMATE
     Indication: EPILEPSY
     Dosage: UNK, 2X/DAY
     Route: 048
     Dates: start: 2011
  4. ALLEGRA-D [Concomitant]
     Active Substance: FEXOFENADINE\PSEUDOEPHEDRINE
     Indication: ANTIALLERGIC THERAPY
     Dosage: 1X AT NIGHT AND WHEN SHE NEEDED IN THE DAY
     Route: 048
  5. MERCILON [Concomitant]
     Active Substance: DESOGESTREL\ETHINYL ESTRADIOL
     Indication: CONTRACEPTION
     Dosage: 1 DF, DAILY
     Route: 048
  6. RIVOTRIL [Concomitant]
     Active Substance: CLONAZEPAM
     Indication: DRUG THERAPY
     Dosage: 1 DF, DAILY
     Route: 048
     Dates: start: 2011
  7. RIVOTRIL [Concomitant]
     Active Substance: CLONAZEPAM
     Indication: SLEEP DISORDER
  8. NIMESULIDE [Concomitant]
     Active Substance: NIMESULIDE
     Indication: SINUSITIS
     Dosage: UNK, AS NEEDED (WHEN SINUSITIS ATTACKED)
     Route: 048
  9. CELEBRA [Suspect]
     Active Substance: CELECOXIB
     Indication: PAIN
     Dosage: 200 MG, DAILY
     Route: 048
     Dates: start: 20160219
  10. CELEBRA [Suspect]
     Active Substance: CELECOXIB
     Indication: HEADACHE
  11. DULOXETINE HYDROCHLORIDE. [Concomitant]
     Active Substance: DULOXETINE HYDROCHLORIDE
     Indication: SEDATION
     Dosage: 1 DF, DAILY
     Route: 048
     Dates: start: 20150531
  12. AMATO [Concomitant]
     Active Substance: TOPIRAMATE
     Indication: HYPOAESTHESIA
  13. BUDECORT [Concomitant]
     Active Substance: BUDESONIDE
     Indication: SINUSITIS
     Dosage: UNK, AS NEEDED (DEPENDED ON HOW THE NOSE IS)
     Route: 045
  14. AMATO [Concomitant]
     Active Substance: TOPIRAMATE
     Indication: MEMORY IMPAIRMENT

REACTIONS (2)
  - Brain neoplasm [Unknown]
  - Cerebrovascular accident [Unknown]
